FAERS Safety Report 25798285 (Version 1)
Quarter: 2025Q3

REPORT INFORMATION
  Report Type: Spontaneous
  Country: EU (occurrence: EU)
  Receive Date: 20250912
  Receipt Date: 20250912
  Transmission Date: 20251020
  Serious: Yes (Life-Threatening, Other)
  Sender: SANDOZ
  Company Number: EU-IPSEN Group, Research and Development-2025-21117

PATIENT
  Age: 63 Year
  Sex: Male

DRUGS (3)
  1. CABOZANTINIB [Suspect]
     Active Substance: CABOZANTINIB
     Indication: Renal cell carcinoma
     Route: 065
     Dates: start: 202503
  2. DENOSUMAB [Suspect]
     Active Substance: DENOSUMAB
     Indication: Renal cell carcinoma
     Route: 065
     Dates: start: 202503
  3. NIVOLUMAB [Suspect]
     Active Substance: NIVOLUMAB
     Indication: Renal cell carcinoma
     Route: 065
     Dates: start: 202503

REACTIONS (3)
  - Autoimmune nephritis [Unknown]
  - Blood creatinine increased [Unknown]
  - Nephrectomy [Unknown]

NARRATIVE: CASE EVENT DATE: 20250401
